APPROVED DRUG PRODUCT: CYCLOBENZAPRINE HYDROCHLORIDE
Active Ingredient: CYCLOBENZAPRINE HYDROCHLORIDE
Strength: 15MG
Dosage Form/Route: CAPSULE, EXTENDED RELEASE;ORAL
Application: A206703 | Product #001
Applicant: APOTEX INC
Approved: Jul 24, 2018 | RLD: No | RS: No | Type: DISCN